FAERS Safety Report 18559766 (Version 2)
Quarter: 2021Q1

REPORT INFORMATION
  Report Type: Spontaneous
  Country: US (occurrence: US)
  Receive Date: 20201130
  Receipt Date: 20210104
  Transmission Date: 20210419
  Serious: No
  Sender: FDA-Public Use
  Company Number: US-BAYER-2020-260194

PATIENT
  Age: 73 Year
  Sex: Female

DRUGS (2)
  1. SYNTHROID [Concomitant]
     Active Substance: LEVOTHYROXINE SODIUM
  2. MIRALAX [Suspect]
     Active Substance: POLYETHYLENE GLYCOL 3350
     Indication: GASTROINTESTINAL DISORDER
     Dosage: 1 CAP FULL IN 8 0Z OF WATER
     Route: 048
     Dates: start: 20201030, end: 20201124

REACTIONS (3)
  - Abdominal discomfort [Unknown]
  - Product odour abnormal [None]
  - Product taste abnormal [None]
